FAERS Safety Report 15932390 (Version 2)
Quarter: 2019Q1

REPORT INFORMATION
  Report Type: Spontaneous
  Country: US (occurrence: US)
  Receive Date: 20190207
  Receipt Date: 20190320
  Transmission Date: 20190417
  Serious: No
  Sender: FDA-Public Use
  Company Number: US-TEVA-2019-US-999770

PATIENT
  Sex: Female

DRUGS (3)
  1. OXYBUTYNIN PILL [Suspect]
     Active Substance: OXYBUTYNIN
     Indication: POLLAKIURIA
  2. OXYBUTYNIN PILL [Suspect]
     Active Substance: OXYBUTYNIN
     Indication: HYPERTONIC BLADDER
     Dosage: 3.9 PATCH EVERY FOUR DAYS
     Route: 062
     Dates: start: 201901
  3. OXYBUTYNIN PILL [Suspect]
     Active Substance: OXYBUTYNIN
     Indication: MICTURITION URGENCY

REACTIONS (5)
  - Fatigue [Not Recovered/Not Resolved]
  - Therapy non-responder [None]
  - Dry mouth [Recovered/Resolved]
  - Vision blurred [Not Recovered/Not Resolved]
  - Product administered at inappropriate site [Unknown]

NARRATIVE: CASE EVENT DATE: 201901
